FAERS Safety Report 13872675 (Version 1)
Quarter: 2017Q3

REPORT INFORMATION
  Report Type: Other
  Country: CA (occurrence: CA)
  Receive Date: 20170816
  Receipt Date: 20170816
  Transmission Date: 20171127
  Serious: Yes (Other)
  Sender: FDA-Public Use
  Company Number: CA-APOTEX-2017AP016392

PATIENT
  Age: 73 Year
  Sex: Female

DRUGS (1)
  1. APO-TIMOP [Suspect]
     Active Substance: TIMOLOL MALEATE
     Indication: GLAUCOMA
     Dosage: 1 DROP QD
     Route: 047

REACTIONS (2)
  - Product substitution issue [Recovered/Resolved]
  - Eye burns [Recovered/Resolved]
